FAERS Safety Report 12998123 (Version 3)
Quarter: 2017Q1

REPORT INFORMATION
  Report Type: Spontaneous
  Country: US (occurrence: US)
  Receive Date: 20161205
  Receipt Date: 20170228
  Transmission Date: 20170428
  Serious: No
  Sender: FDA-Public Use
  Company Number: US-PFIZER INC-2016556105

PATIENT
  Age: 17 Year
  Sex: Female
  Weight: 53 kg

DRUGS (4)
  1. GENOTROPIN [Suspect]
     Active Substance: SOMATROPIN
     Indication: GONADAL DYSGENESIS
     Dosage: 3 MG, DAILY
     Route: 058
     Dates: start: 201412
  2. GENOTROPIN [Suspect]
     Active Substance: SOMATROPIN
     Indication: BLOOD GROWTH HORMONE ABNORMAL
  3. VIVELLE-DOT [Concomitant]
     Active Substance: ESTRADIOL
     Indication: MENSTRUAL DISORDER
     Dosage: 0.025 MG, UNK
     Dates: start: 20160808, end: 20161019
  4. GENOTROPIN [Suspect]
     Active Substance: SOMATROPIN
     Indication: TURNER^S SYNDROME

REACTIONS (1)
  - Menstruation irregular [Recovered/Resolved]

NARRATIVE: CASE EVENT DATE: 201609
